FAERS Safety Report 4531017-4 (Version None)
Quarter: 2004Q4

REPORT INFORMATION
  Report Type: 
  Country: None (occurrence: None)
  Receive Date: 20041202
  Receipt Date: 20041013
  Transmission Date: 20050328
  Serious: No
  Sender: FDA-Public Use
  Company Number: 200420830BWH

PATIENT
  Age: 38 Year
  Sex: Male
  Weight: 148.3262 kg

DRUGS (11)
  1. LEVITRA [Suspect]
     Indication: ERECTILE DYSFUNCTION
     Dosage: 10-20 MG, TOTAL DAILY, ORAL
     Route: 048
     Dates: start: 20041008
  2. LEVITRA [Suspect]
     Indication: ERECTILE DYSFUNCTION
     Dosage: 10-20 MG, TOTAL DAILY, ORAL
     Route: 048
     Dates: start: 20041010
  3. PROZAC [Concomitant]
  4. HUMULIN N [Concomitant]
  5. METFORMIN HCL [Concomitant]
  6. AVANDIA [Concomitant]
  7. DIOVAN [Concomitant]
  8. LIPITOR [Concomitant]
  9. TRAZODONE HCL [Concomitant]
  10. SEROQUEL [Concomitant]
  11. MOTRIN [Concomitant]

REACTIONS (2)
  - ERECTILE DYSFUNCTION [None]
  - FLUSHING [None]
